FAERS Safety Report 8579012-2 (Version None)
Quarter: 2012Q3

REPORT INFORMATION
  Report Type: 
  Country: None (occurrence: None)
  Receive Date: 20120808
  Receipt Date: 20120706
  Transmission Date: 20120928
  Serious: Yes (Other)
  Sender: FDA-Public Use
  Company Number: US-JNJFOC-20120704529

PATIENT
  Age: 31 Year
  Sex: Female
  Weight: 90.72 kg

DRUGS (4)
  1. VENTOLIN [Concomitant]
     Indication: ASTHMA
     Dosage: 2 PUFFS/1X A DAY
     Route: 065
     Dates: start: 20080101
  2. TYLENOL (CAPLET) [Suspect]
     Indication: HEADACHE
     Dosage: 2 CAPLETS ONCE
     Route: 048
  3. FLUTICASONE PROPIONATE [Concomitant]
     Indication: ASTHMA
     Dosage: 2 PUFFS/1X A DAY
     Route: 065
     Dates: start: 20080101
  4. SINGULAIR [Concomitant]
     Indication: ASTHMA
     Route: 065
     Dates: start: 20080101

REACTIONS (1)
  - ASTHMA [None]
